FAERS Safety Report 9350510 (Version 1)
Quarter: 2013Q2

REPORT INFORMATION
  Report Type: Spontaneous
  Country: US (occurrence: US)
  Receive Date: 20130617
  Receipt Date: 20130617
  Transmission Date: 20140414
  Serious: No
  Sender: FDA-Public Use
  Company Number: US-PFIZER INC-2013178015

PATIENT
  Age: 36 Year
  Sex: Male
  Weight: 92.97 kg

DRUGS (8)
  1. CHANTIX [Suspect]
     Indication: SMOKING CESSATION THERAPY
     Dosage: 0.5 MG, DAILY
     Route: 048
     Dates: start: 20130605, end: 20130607
  2. CHANTIX [Suspect]
     Dosage: 0.5 MG, 2X/DAY
     Route: 048
     Dates: start: 20130608, end: 20130611
  3. CHANTIX [Suspect]
     Dosage: 1 MG, DAILY
     Dates: start: 20130612
  4. ALPRAZOLAM [Suspect]
     Indication: CONVULSION
     Dosage: 0.5 MG, DAILY
     Route: 048
  5. ALPRAZOLAM [Suspect]
     Indication: MUSCLE SPASMS
  6. DIAZEPAM [Suspect]
     Indication: CONVULSION
     Dosage: 5 MG, 2X/DAY
     Route: 048
  7. DIAZEPAM [Suspect]
     Indication: MUSCLE SPASMS
  8. OXYCODONE HYDROCHLORIDE [Suspect]
     Indication: SPINAL PAIN
     Dosage: 30 MG, 3X/DAY

REACTIONS (3)
  - Tremor [Not Recovered/Not Resolved]
  - Activities of daily living impaired [Not Recovered/Not Resolved]
  - Off label use [Unknown]
